FAERS Safety Report 8136596-6 (Version None)
Quarter: 2012Q1

REPORT INFORMATION
  Report Type: 
  Country: None (occurrence: None)
  Receive Date: 20120214
  Receipt Date: 20120213
  Transmission Date: 20120608
  Serious: Yes (Death)
  Sender: FDA-Public Use
  Company Number: PHFR2011GB04677

PATIENT
  Sex: Male

DRUGS (4)
  1. PROCYCLIDINE HYDROCHLORIDE 2MG TAB [Concomitant]
     Dosage: 5 MG, QD
     Route: 048
     Dates: start: 20080101
  2. OMEPRAZOLE [Concomitant]
     Indication: GASTRITIS
     Dosage: 20 MG, QD
     Dates: start: 20100101
  3. CLOZARIL [Suspect]
     Indication: SCHIZOPHRENIA
     Dosage: 750 MG, (300 MG IN THE MORNING AND 450 MG AT NIGHT)
     Dates: start: 19940622
  4. TRIFLUOPERAZINE HCL [Concomitant]
     Dosage: 5 MG, QD
     Route: 048

REACTIONS (2)
  - INTESTINAL PERFORATION [None]
  - GASTROINTESTINAL INFECTION [None]
